FAERS Safety Report 19528303 (Version 1)
Quarter: 2021Q3

REPORT INFORMATION
  Report Type: Spontaneous
  Country: DE (occurrence: DE)
  Receive Date: 20210713
  Receipt Date: 20210713
  Transmission Date: 20211014
  Serious: Yes (Other)
  Sender: FDA-Public Use
  Company Number: DE-AUROBINDO-AUR-APL-2021-029128

PATIENT
  Sex: Male

DRUGS (9)
  1. VALSARTAN FILM?COATED TABLET [Suspect]
     Active Substance: VALSARTAN
     Indication: ESSENTIAL HYPERTENSION
     Dosage: 0.5 MILLIGRAM, ONCE A DAY (0.5 MG (160 MG (=80 MG)) 98 TABLETS)
     Route: 048
     Dates: start: 20140111
  2. VALSARTAN FILM?COATED TABLET [Suspect]
     Active Substance: VALSARTAN
     Dosage: UNK
     Route: 065
     Dates: start: 20150731
  3. VALSARTAN FILM?COATED TABLET [Suspect]
     Active Substance: VALSARTAN
     Dosage: UNK
     Route: 065
     Dates: start: 20161216
  4. VALSACOR [Concomitant]
     Active Substance: VALSARTAN
     Indication: PRODUCT USED FOR UNKNOWN INDICATION
     Dosage: 80 MILLIGRAM
     Route: 065
  5. VALSARTAN FILM?COATED TABLET [Suspect]
     Active Substance: VALSARTAN
     Dosage: UNK
     Route: 065
     Dates: start: 20180615
  6. VALSARTAN HEXAL [Suspect]
     Active Substance: VALSARTAN
     Indication: HYPERTENSION
     Dosage: 160 MILLIGRAM
     Route: 065
     Dates: start: 2013, end: 2014
  7. VALSARTAN HEXAL [Suspect]
     Active Substance: VALSARTAN
     Indication: ESSENTIAL HYPERTENSION
  8. VALSARTAN 1A PHARMA [Suspect]
     Active Substance: VALSARTAN
     Indication: ESSENTIAL HYPERTENSION
     Dosage: 160 MILLIGRAM
     Route: 065
  9. VALSARTAN 1A PHARMA [Suspect]
     Active Substance: VALSARTAN
     Indication: HYPERTENSION
     Dosage: 0.5 DOSAGE FORM, ONCE A DAY (0.5 DF OF 160 MG)
     Route: 065
     Dates: start: 2017, end: 2018

REACTIONS (2)
  - Melanocytic naevus [Unknown]
  - Malignant melanoma [Unknown]

NARRATIVE: CASE EVENT DATE: 20190823
